FAERS Safety Report 24456869 (Version 1)
Quarter: 2024Q4

REPORT INFORMATION
  Report Type: Spontaneous
  Country: US (occurrence: US)
  Receive Date: 20241018
  Receipt Date: 20241018
  Transmission Date: 20250115
  Serious: No
  Sender: JOHNSON AND JOHNSON
  Company Number: US-JNJFOC-20241028955

PATIENT

DRUGS (1)
  1. SIMPONI ARIA [Interacting]
     Active Substance: GOLIMUMAB
     Indication: Product used for unknown indication
     Route: 041

REACTIONS (1)
  - Drug interaction [Unknown]
